FAERS Safety Report 25730324 (Version 1)
Quarter: 2025Q3

REPORT INFORMATION
  Report Type: Report from Study
  Country: US (occurrence: US)
  Receive Date: 20250827
  Receipt Date: 20250827
  Transmission Date: 20251021
  Serious: Yes (Other)
  Sender: ABBVIE
  Company Number: US-ABBVIE-4305881

PATIENT
  Sex: Female
  Weight: 93.893 kg

DRUGS (1)
  1. SKYRIZI [Suspect]
     Active Substance: RISANKIZUMAB-RZAA
     Indication: Psoriasis
     Route: 058
     Dates: start: 20200331

REACTIONS (6)
  - Medical device implantation [Unknown]
  - Psoriasis [Unknown]
  - Herpes zoster [Unknown]
  - Chronic obstructive pulmonary disease [Unknown]
  - Coccidioidomycosis [Unknown]
  - Skin ulcer [Not Recovered/Not Resolved]
